FAERS Safety Report 6666768-9 (Version None)
Quarter: 2010Q2

REPORT INFORMATION
  Report Type: 
  Country: None (occurrence: None)
  Receive Date: 20100405
  Receipt Date: 20100330
  Transmission Date: 20101027
  Serious: Yes (Hospitalization)
  Sender: FDA-Public Use
  Company Number: US-B.I. PHARMACEUTICALS,INC./RIDGEFIELD-2010-BP-01347BP

PATIENT
  Sex: Male

DRUGS (12)
  1. SPIRIVA [Suspect]
     Indication: CHRONIC OBSTRUCTIVE PULMONARY DISEASE
     Dosage: 18 MCG
     Route: 055
     Dates: start: 20090101
  2. SPIRIVA [Suspect]
     Dosage: 18 MCG
     Route: 055
     Dates: start: 20080101, end: 20080101
  3. ACTOPLUS MET [Concomitant]
     Indication: DIABETES MELLITUS
  4. TRICOR [Concomitant]
     Indication: BLOOD CHOLESTEROL INCREASED
     Dates: start: 20080101
  5. CRESTOR [Concomitant]
     Indication: BLOOD CHOLESTEROL INCREASED
     Dates: start: 20080101
  6. DIOVAN [Concomitant]
     Indication: HYPERTENSION
     Dates: start: 20080101
  7. PLAVIX [Concomitant]
     Indication: CORONARY ARTERY DISEASE
  8. POTASSIUM [Concomitant]
     Indication: PROPHYLAXIS
     Dates: start: 20080101
  9. SYMBICORT [Concomitant]
     Indication: CHRONIC OBSTRUCTIVE PULMONARY DISEASE
  10. SYMBICORT [Concomitant]
     Indication: EMPHYSEMA
  11. DILTIAZEM [Concomitant]
     Indication: HYPERTENSION
  12. LYRICA [Concomitant]
     Indication: NEUROPATHY PERIPHERAL

REACTIONS (8)
  - ABDOMINAL PAIN UPPER [None]
  - BLOOD PRESSURE INADEQUATELY CONTROLLED [None]
  - CHEST DISCOMFORT [None]
  - DRUG INEFFECTIVE [None]
  - HYPERTENSION [None]
  - HYPOTENSION [None]
  - MUSCLE SPASMS [None]
  - PNEUMONIA [None]
